FAERS Safety Report 6405228-7 (Version None)
Quarter: 2009Q4

REPORT INFORMATION
  Report Type: 
  Country: None (occurrence: None)
  Receive Date: 20091016
  Receipt Date: 20091016
  Transmission Date: 20100525
  Serious: Yes (Life-Threatening, Hospitalization)
  Sender: FDA-Public Use
  Company Number: None

PATIENT
  Age: 71 Year
  Sex: Female
  Weight: 83.9 kg

DRUGS (19)
  1. SUTENT [Suspect]
     Indication: METASTATIC RENAL CELL CARCINOMA
     Dosage: 50MG DAILY ORAL
     Route: 048
     Dates: start: 20090902, end: 20090930
  2. ALLOPURINOL [Concomitant]
  3. AMLODIPINE [Concomitant]
  4. ASPIRIN [Concomitant]
  5. ATORVASTATIN [Concomitant]
  6. CALCIUM CARBONATE [Concomitant]
  7. DIPHENHYDRAMINE/ALUMINUM/MAGNESIUM/SIMETHICONE-LIDOCAINE [Concomitant]
  8. DOCUSTATE SODIUM [Concomitant]
  9. ACETAMINOPHEN AND HYDROCODONE BITARTRATE [Concomitant]
  10. LISINOPRIL AND HYDROCHLOROTHIAZIDE [Concomitant]
  11. MEGESTEROL [Concomitant]
  12. METFORMIN HCL [Concomitant]
  13. METOPROLOL SUCCINATE [Concomitant]
  14. MULTIPLE VITAMIN TABLETS [Concomitant]
  15. OMEPRAZOLE [Concomitant]
  16. ONDANSETRON [Concomitant]
  17. PROCHLORPERAZINE [Concomitant]
  18. SOLIFENACIN [Concomitant]
  19. TRAZODONE HCL [Concomitant]

REACTIONS (3)
  - AUTOIMMUNE THROMBOCYTOPENIA [None]
  - EPISTAXIS [None]
  - RECTAL HAEMORRHAGE [None]
